FAERS Safety Report 5603852-2 (Version None)
Quarter: 2008Q1

REPORT INFORMATION
  Report Type: 
  Country: None (occurrence: None)
  Receive Date: 20080124
  Receipt Date: 20080124
  Transmission Date: 20080703
  Serious: Yes (Hospitalization)
  Sender: FDA-Public Use
  Company Number: None

PATIENT
  Sex: Female
  Weight: 102.1 kg

DRUGS (2)
  1. CYCLOPHOSPHAMIDE [Suspect]
     Dosage: 1270 MG
  2. DOXORUBICIN HYDROCHLORIDE [Suspect]
     Dosage: 127 MG

REACTIONS (6)
  - DYSPNOEA [None]
  - HEADACHE [None]
  - LUNG INFILTRATION [None]
  - PRODUCTIVE COUGH [None]
  - PYREXIA [None]
  - SPUTUM DISCOLOURED [None]
